FAERS Safety Report 12884011 (Version 3)
Quarter: 2017Q1

REPORT INFORMATION
  Report Type: Spontaneous
  Country: US (occurrence: US)
  Receive Date: 20161026
  Receipt Date: 20170110
  Transmission Date: 20170428
  Serious: No
  Sender: FDA-Public Use
  Company Number: US-TAIHO ONCOLOGY INC-EU-2016-02177

PATIENT
  Age: 80 Year
  Sex: Male

DRUGS (7)
  1. LONSURF [Suspect]
     Active Substance: TIPIRACIL HYDROCHLORIDE\TRIFLURIDINE
     Indication: COLON CANCER
     Route: 048
     Dates: start: 20160718
  2. GABAPENTIN. [Concomitant]
     Active Substance: GABAPENTIN
  3. PARACETAMOL/HYDROCODONE BITARTRATE [Concomitant]
  4. FENTANYL. [Concomitant]
     Active Substance: FENTANYL
     Dosage: NI
  5. GLIBENCLAMIDE [Concomitant]
     Active Substance: GLYBURIDE
  6. WARFARIN [Concomitant]
     Active Substance: WARFARIN
  7. ENALAPRIL [Concomitant]
     Active Substance: ENALAPRIL

REACTIONS (5)
  - Asthenia [Not Recovered/Not Resolved]
  - Nausea [Not Recovered/Not Resolved]
  - Fatigue [Not Recovered/Not Resolved]
  - Decreased appetite [Not Recovered/Not Resolved]
  - Contusion [Unknown]

NARRATIVE: CASE EVENT DATE: 2016
